FAERS Safety Report 15802896 (Version 1)
Quarter: 2019Q1

REPORT INFORMATION
  Report Type: Spontaneous
  Country: US (occurrence: US)
  Receive Date: 20190109
  Receipt Date: 20190109
  Transmission Date: 20190417
  Serious: Yes (Hospitalization)
  Sender: FDA-Public Use
  Company Number: US-PFIZER INC-2019006632

PATIENT
  Age: 54 Year
  Sex: Male
  Weight: 73.48 kg

DRUGS (2)
  1. LYRICA [Suspect]
     Active Substance: PREGABALIN
     Indication: ANXIETY
     Dosage: 100 MG, ONE TIME AT NIGHT BEFORE GOING TO SLEEP
     Route: 048
  2. LYRICA [Suspect]
     Active Substance: PREGABALIN
     Indication: PERIPHERAL COLDNESS

REACTIONS (5)
  - Impatience [Unknown]
  - Intentional product use issue [Unknown]
  - Frustration tolerance decreased [Unknown]
  - Product use in unapproved indication [Unknown]
  - Ligament pain [Unknown]
